FAERS Safety Report 20885270 (Version 3)
Quarter: 2022Q2

REPORT INFORMATION
  Report Type: Report from Study
  Country: JP (occurrence: JP)
  Receive Date: 20220527
  Receipt Date: 20220629
  Transmission Date: 20220720
  Serious: Yes (Hospitalization, Other)
  Sender: FDA-Public Use
  Company Number: JP-BRISTOL-MYERS SQUIBB COMPANY-BMS-2021-144859

PATIENT
  Age: 49 Year
  Sex: Male
  Weight: 53.50 kg

DRUGS (11)
  1. NIVOLUMAB [Suspect]
     Active Substance: NIVOLUMAB
     Indication: Bile duct cancer stage II
     Dosage: 480 MILLIGRAM
     Route: 042
     Dates: start: 20210910, end: 20211202
  2. NIVOLUMAB [Suspect]
     Active Substance: NIVOLUMAB
     Route: 042
     Dates: start: 20211008
  3. NIVOLUMAB [Suspect]
     Active Substance: NIVOLUMAB
     Route: 042
     Dates: start: 20211105
  4. NIVOLUMAB [Suspect]
     Active Substance: NIVOLUMAB
     Route: 042
     Dates: start: 20211202
  5. NIVOLUMAB [Suspect]
     Active Substance: NIVOLUMAB
     Route: 042
     Dates: start: 20220225
  6. REGORAFENIB [Suspect]
     Active Substance: REGORAFENIB
     Indication: Bile duct cancer stage II
     Dosage: 90 MILLIGRAM
     Route: 048
     Dates: start: 20210910, end: 20210923
  7. REGORAFENIB [Suspect]
     Active Substance: REGORAFENIB
     Dosage: 60 MILLIGRAM
     Route: 048
     Dates: start: 20211008, end: 20211028
  8. REGORAFENIB [Suspect]
     Active Substance: REGORAFENIB
     Dosage: 60 MILLIGRAM
     Route: 048
     Dates: start: 20211105, end: 20211125
  9. REGORAFENIB [Suspect]
     Active Substance: REGORAFENIB
     Dosage: 60 MILLIGRAM
     Route: 048
     Dates: start: 20211202, end: 20211212
  10. REGORAFENIB [Suspect]
     Active Substance: REGORAFENIB
     Route: 048
     Dates: start: 20220107, end: 20220117
  11. REGORAFENIB [Suspect]
     Active Substance: REGORAFENIB
     Route: 048
     Dates: start: 20220125, end: 20220214

REACTIONS (2)
  - Cholecystitis [Recovered/Resolved]
  - Hypopituitarism [Recovering/Resolving]

NARRATIVE: CASE EVENT DATE: 20211212
